FAERS Safety Report 4368638-8 (Version None)
Quarter: 2004Q2

REPORT INFORMATION
  Report Type: 
  Country: None (occurrence: None)
  Receive Date: 20040525
  Receipt Date: 20040514
  Transmission Date: 20050107
  Serious: Yes (Hospitalization)
  Sender: FDA-Public Use
  Company Number: 04P-056-0261307-00

PATIENT
  Age: 74 Year
  Sex: Female

DRUGS (1)
  1. DEPAKENE [Suspect]
     Dosage: PER ORAL
     Route: 048
     Dates: end: 20040305

REACTIONS (7)
  - ANAEMIA [None]
  - BRADYPHRENIA [None]
  - CONFUSIONAL STATE [None]
  - DRUG LEVEL INCREASED [None]
  - GENERAL PHYSICAL HEALTH DETERIORATION [None]
  - METABOLIC ENCEPHALOPATHY [None]
  - THROMBOCYTOPENIA [None]
